FAERS Safety Report 8186500-X (Version None)
Quarter: 2012Q1

REPORT INFORMATION
  Report Type: 
  Country: None (occurrence: None)
  Receive Date: 20120302
  Receipt Date: 20120302
  Transmission Date: 20120608
  Serious: No
  Sender: FDA-Public Use
  Company Number: None

PATIENT
  Age: 62 Year
  Sex: Female
  Weight: 70.3075 kg

DRUGS (1)
  1. METOPROLOL SUCCINATE EXTENDED RELEASE [Suspect]
     Indication: CARDIAC DISORDER
     Dosage: 1 TABLET ONCE A DAY
     Dates: start: 20120215, end: 20120223

REACTIONS (2)
  - STOMATITIS [None]
  - DYSPHAGIA [None]
